FAERS Safety Report 15362360 (Version 1)
Quarter: 2018Q3

REPORT INFORMATION
  Report Type: Spontaneous
  Country: US (occurrence: US)
  Receive Date: 20180907
  Receipt Date: 20180907
  Transmission Date: 20181010
  Serious: Yes (Hospitalization)
  Sender: FDA-Public Use
  Company Number: US-MYLANLABS-2018M1065041

PATIENT
  Age: 45 Year
  Sex: Female

DRUGS (2)
  1. GEMCITABINE [Suspect]
     Active Substance: GEMCITABINE\GEMCITABINE HYDROCHLORIDE
     Indication: UTERINE LEIOMYOSARCOMA
     Dosage: 900 MG/M2, STARTED 3 MONTHS PRIOR TO ADMISSION (DAY 1 AND DAY 8, EVERY 21 DAYS)
     Route: 065
  2. DOCETAXEL. [Concomitant]
     Active Substance: DOCETAXEL
     Indication: UTERINE LEIOMYOSARCOMA
     Dosage: 75 MG/M2, DAY 8 (EVERY 21 DAYS)
     Route: 065

REACTIONS (6)
  - Chromaturia [Unknown]
  - Immune thrombocytopenic purpura [Recovered/Resolved]
  - Hypertension [Unknown]
  - Sinus tachycardia [Unknown]
  - Haematochezia [Unknown]
  - Acute kidney injury [Unknown]
